FAERS Safety Report 5237677-7 (Version None)
Quarter: 2007Q1

REPORT INFORMATION
  Report Type: 
  Country: None (occurrence: None)
  Receive Date: 20070214
  Receipt Date: 20070131
  Transmission Date: 20070707
  Serious: Yes (Hospitalization)
  Sender: FDA-Public Use
  Company Number: US-ELI_LILLY_AND_COMPANY-US200702000210

PATIENT
  Age: 27 Year
  Sex: Female
  Weight: 58.956 kg

DRUGS (3)
  1. STRATTERA [Suspect]
     Indication: CHEST PAIN
     Dosage: 80 MG, UNK
     Dates: start: 20051201, end: 20060710
  2. STRATTERA [Suspect]
     Dates: start: 20060721, end: 20070110
  3. ORAL CONTRACEPTIVE NOS [Concomitant]

REACTIONS (6)
  - APHASIA [None]
  - ARTERIAL DISORDER [None]
  - BALANCE DISORDER [None]
  - DIZZINESS [None]
  - FEELING ABNORMAL [None]
  - HEART VALVE INSUFFICIENCY [None]
